FAERS Safety Report 5158401-2 (Version None)
Quarter: 2006Q4

REPORT INFORMATION
  Report Type: 
  Country: None (occurrence: None)
  Receive Date: 20061128
  Receipt Date: 20060214
  Transmission Date: 20070319
  Serious: Yes (Hospitalization, Other)
  Sender: FDA-Public Use
  Company Number: PHNU2006AU00943

PATIENT
  Age: 35 Year
  Sex: Male

DRUGS (2)
  1. CLOZARIL [Suspect]
     Dosage: UP TO 600 MG/DAY
     Route: 048
     Dates: start: 19941229, end: 20060214
  2. INTERFERON [Suspect]
     Indication: HEPATITIS C
     Route: 065
     Dates: start: 20060201

REACTIONS (8)
  - AGRANULOCYTOSIS [None]
  - HAEMOGLOBIN DECREASED [None]
  - HEPATITIS C [None]
  - LYMPHOPENIA [None]
  - NEUTROPENIA [None]
  - PANCYTOPENIA [None]
  - THROMBOCYTOPENIA [None]
  - WHITE BLOOD CELL COUNT DECREASED [None]
